FAERS Safety Report 7358127-0 (Version None)
Quarter: 2011Q1

REPORT INFORMATION
  Report Type: 
  Country: None (occurrence: None)
  Receive Date: 20110307
  Receipt Date: 20100517
  Transmission Date: 20110831
  Serious: No
  Sender: FDA-Public Use
  Company Number: AEUSA201000181

PATIENT
  Age: 51 Year
  Sex: Male
  Weight: 100.6985 kg

DRUGS (21)
  1. PULMICORT [Concomitant]
  2. PROLASTIN-C [Suspect]
     Indication: ALPHA-1 ANTI-TRYPSIN DEFICIENCY
     Dosage: 6000 MG;QW;IV
     Route: 042
     Dates: start: 20100301, end: 20100602
  3. SIMVASTATIN [Concomitant]
  4. MITAMIN B12 [Concomitant]
  5. MULTI-VITAMINS [Concomitant]
  6. BACLOFEN [Concomitant]
  7. PROLASTIN [Concomitant]
  8. SPIRIVA [Concomitant]
  9. ANTIBIOTICS [Concomitant]
  10. SPIRONOLACTONE W/HYDROCHLORTHUAZIDE [Concomitant]
  11. ASPIRIN [Concomitant]
  12. ASCORBIC ACID [Concomitant]
  13. THEOPHYLLINE [Concomitant]
  14. FLAXSEED OIL [Concomitant]
  15. SEREVENT [Concomitant]
  16. CALCIUM [Concomitant]
  17. TRAMDOL [Concomitant]
  18. ZOLPIDEM [Concomitant]
  19. LUTEIN [Concomitant]
  20. ALBUTEROL [Concomitant]
  21. TRAZODONE [Concomitant]

REACTIONS (1)
  - DYSPNOEA EXERTIONAL [None]
